FAERS Safety Report 6315841-3 (Version None)
Quarter: 2009Q3

REPORT INFORMATION
  Report Type: 
  Country: None (occurrence: None)
  Receive Date: 20090820
  Receipt Date: 20090814
  Transmission Date: 20100115
  Serious: Yes (Disabling)
  Sender: FDA-Public Use
  Company Number: AU-WYE-G04254209

PATIENT
  Sex: Female

DRUGS (1)
  1. PRISTIQ [Suspect]
     Dosage: 50MG D STARTED ABOUT 2 MONTHS AGO THEN 100MG D A WEEK AGO THEN DECREASED TO 50MG D ABOUT 2 DAYS AGO

REACTIONS (4)
  - DIPLOPIA [None]
  - HEADACHE [None]
  - MOTION SICKNESS [None]
  - NAUSEA [None]
